FAERS Safety Report 9741554 (Version 1)
Quarter: 2013Q4

REPORT INFORMATION
  Report Type: Spontaneous
  Country: CZ (occurrence: CZ)
  Receive Date: 20131210
  Receipt Date: 20131210
  Transmission Date: 20140711
  Serious: Yes (Other)
  Sender: FDA-Public Use
  Company Number: PHHY2013CZ140630

PATIENT
  Sex: Male

DRUGS (3)
  1. GABAPENTIN [Suspect]
     Indication: NEUROPATHY PERIPHERAL
     Dosage: UNK
  2. AMITRIPTYLINE [Suspect]
     Indication: NEUROPATHY PERIPHERAL
  3. FENTANYL [Concomitant]

REACTIONS (5)
  - Visual impairment [Unknown]
  - Orthostatic hypotension [Unknown]
  - Hypertension [Unknown]
  - Gastrointestinal disorder [Unknown]
  - Drug ineffective [Unknown]
